FAERS Safety Report 8334369-2 (Version None)
Quarter: 2012Q2

REPORT INFORMATION
  Report Type: 
  Country: None (occurrence: None)
  Receive Date: 20120503
  Receipt Date: 20120426
  Transmission Date: 20120825
  Serious: Yes (Hospitalization)
  Sender: FDA-Public Use
  Company Number: AT-TEVA-335680ISR

PATIENT
  Age: 53 Year
  Sex: Male

DRUGS (2)
  1. REPAGLINIDE [Suspect]
  2. METFORMIN HCL [Suspect]
     Dosage: 50000 MILLIGRAM;

REACTIONS (13)
  - DIZZINESS [None]
  - LACTIC ACIDOSIS [None]
  - RESPIRATORY RATE [None]
  - SUICIDAL IDEATION [None]
  - INTENTIONAL OVERDOSE [None]
  - DIARRHOEA [None]
  - HYPOTENSION [None]
  - SOMNOLENCE [None]
  - POISONING [None]
  - ANION GAP INCREASED [None]
  - HYPOGLYCAEMIA [None]
  - RENAL FAILURE [None]
  - TOXICITY TO VARIOUS AGENTS [None]
